FAERS Safety Report 8124580-8 (Version None)
Quarter: 2012Q1

REPORT INFORMATION
  Report Type: 
  Country: None (occurrence: None)
  Receive Date: 20120209
  Receipt Date: 20120202
  Transmission Date: 20120608
  Serious: Yes (Hospitalization)
  Sender: FDA-Public Use
  Company Number: PL-SANOFI-AVENTIS-2012SA007513

PATIENT
  Age: 68 Year
  Sex: Female

DRUGS (9)
  1. SPIRONOLACTONE [Concomitant]
     Dates: start: 20111217
  2. TRASTUZUMAB [Suspect]
     Route: 042
     Dates: start: 20110722
  3. RAMIPRIL [Concomitant]
     Dates: start: 20111217
  4. DOCETAXEL [Suspect]
     Dosage: FORM: CONCENTRATE FOR SOLUTION
     Route: 042
     Dates: start: 20110722
  5. BISOPROLOL FUMARATE [Concomitant]
     Dates: start: 20111217
  6. ANASTROZOLE [Concomitant]
  7. FUROSEMIDE [Concomitant]
     Dates: start: 20111217
  8. CYCLOPHOSPHAMIDE [Concomitant]
  9. DOXORUBICIN HCL [Concomitant]

REACTIONS (1)
  - RIGHT VENTRICULAR DYSFUNCTION [None]
